FAERS Safety Report 15947666 (Version 1)
Quarter: 2019Q1

REPORT INFORMATION
  Report Type: Spontaneous
  Country: US (occurrence: US)
  Receive Date: 20190211
  Receipt Date: 20190211
  Transmission Date: 20190417
  Serious: No
  Sender: FDA-Public Use
  Company Number: US-PFIZER INC-2019062460

PATIENT
  Age: 2 Year
  Sex: Female

DRUGS (2)
  1. GENOTROPIN [Suspect]
     Active Substance: SOMATROPIN
     Indication: SILVER-RUSSELL SYNDROME
     Dosage: 0.7 MG, 6 DAYS A WEEK
     Dates: start: 20080508
  2. GENOTROPIN [Suspect]
     Active Substance: SOMATROPIN
     Dosage: 1.8 MG, 6 DAYS A WEEK

REACTIONS (6)
  - White blood cell count increased [Unknown]
  - Mean cell volume increased [Unknown]
  - Blood creatinine decreased [Unknown]
  - Mean platelet volume decreased [Unknown]
  - Basophil count increased [Unknown]
  - Drug ineffective for unapproved indication [Unknown]

NARRATIVE: CASE EVENT DATE: 20080505
